FAERS Safety Report 4903446-8 (Version None)
Quarter: 2006Q1

REPORT INFORMATION
  Report Type: 
  Country: None (occurrence: None)
  Receive Date: 20060203
  Receipt Date: 20060127
  Transmission Date: 20060701
  Serious: Yes (Hospitalization)
  Sender: FDA-Public Use
  Company Number: RENA-11669

PATIENT
  Age: 77 Year
  Sex: Male

DRUGS (7)
  1. RENAGEL [Suspect]
     Indication: HYPERPHOSPHATAEMIA
     Dosage: 2.4 G TID PO
     Route: 048
     Dates: start: 20051108
  2. RENAGEL [Suspect]
     Indication: HYPERPHOSPHATAEMIA
     Dosage: 1.6 G BID PO
     Route: 048
     Dates: start: 20030601, end: 20051107
  3. ASPEGIC [Concomitant]
  4. OMEPRAZOLE [Concomitant]
  5. SECTRAL [Concomitant]
  6. LIPANTHYL [Concomitant]
  7. KAYEXALATE [Concomitant]

REACTIONS (4)
  - DUODENAL ULCER [None]
  - GASTRIC ULCER [None]
  - GASTROINTESTINAL HAEMORRHAGE [None]
  - PERFORATED ULCER [None]
